FAERS Safety Report 7747841-0 (Version None)
Quarter: 2011Q3

REPORT INFORMATION
  Report Type: 
  Country: None (occurrence: None)
  Receive Date: 20110909
  Receipt Date: 20110824
  Transmission Date: 20111222
  Serious: Yes (Hospitalization, Disabling)
  Sender: FDA-Public Use
  Company Number: 2011MA012609

PATIENT
  Sex: Female

DRUGS (1)
  1. DIGOXIN [Suspect]
     Dosage: PO
     Route: 048

REACTIONS (9)
  - CARDIAC PACEMAKER INSERTION [None]
  - ECONOMIC PROBLEM [None]
  - PRODUCT QUALITY ISSUE [None]
  - DIALYSIS [None]
  - PAIN [None]
  - SURGERY [None]
  - FAMILY STRESS [None]
  - UNEVALUABLE EVENT [None]
  - SOCIAL PROBLEM [None]
